FAERS Safety Report 16811089 (Version 5)
Quarter: 2019Q4

REPORT INFORMATION
  Report Type: Spontaneous
  Country: JP (occurrence: JP)
  Receive Date: 20190916
  Receipt Date: 20191227
  Transmission Date: 20200122
  Serious: Yes (Other)
  Sender: FDA-Public Use
  Company Number: JP-SEATTLE GENETICS-2019SGN03182

PATIENT
  Age: 6 Year
  Sex: Male

DRUGS (4)
  1. VINBLASTINE SULFATE. [Concomitant]
     Active Substance: VINBLASTINE SULFATE
     Dosage: UNK
     Route: 065
  2. DACARBAZINE. [Concomitant]
     Active Substance: DACARBAZINE
     Dosage: UNK
     Route: 065
  3. ADCETRIS [Suspect]
     Active Substance: BRENTUXIMAB VEDOTIN
     Indication: HODGKIN^S DISEASE
     Dosage: UNK
     Route: 042
     Dates: start: 20190801
  4. DOXORUBICIN HYDROCHLORIDE. [Concomitant]
     Active Substance: DOXORUBICIN HYDROCHLORIDE
     Dosage: UNK
     Route: 065

REACTIONS (4)
  - Biliary dilatation [Unknown]
  - White blood cell count decreased [Recovered/Resolved]
  - Diarrhoea [Unknown]
  - Anaemia [Unknown]

NARRATIVE: CASE EVENT DATE: 20190805
